FAERS Safety Report 4887301-8 (Version None)
Quarter: 2005Q4

REPORT INFORMATION
  Report Type: 
  Country: None (occurrence: None)
  Receive Date: 20051220
  Receipt Date: 20050620
  Transmission Date: 20060501
  Serious: Yes (Other)
  Sender: FDA-Public Use
  Company Number: HQWYE618922JUN05

PATIENT
  Age: 54 Year
  Sex: Female
  Weight: 87.62 kg

DRUGS (11)
  1. EFFEXOR XR [Suspect]
     Indication: ANXIETY
     Dosage: 375 MG 1 X PER 1 DAY, ORAL
     Route: 048
     Dates: start: 20050201, end: 20050501
  2. EFFEXOR XR [Suspect]
     Indication: DEPRESSION
     Dosage: 375 MG 1 X PER 1 DAY, ORAL
     Route: 048
     Dates: start: 20050201, end: 20050501
  3. AVAPRO [Concomitant]
  4. ATENOLOL [Concomitant]
  5. ALBUTEROL [Concomitant]
  6. CYMBALTA [Concomitant]
  7. FOSAMAX [Concomitant]
  8. SYNTHROID [Concomitant]
  9. DYAZIDE [Concomitant]
  10. ADVAIR (FLUTICASONER PROPINATE/SALMETEROL XINAFOATE) [Concomitant]
  11. WELCHOL [Concomitant]

REACTIONS (12)
  - ANAEMIA [None]
  - ANXIETY [None]
  - BLOOD CALCIUM INCREASED [None]
  - BLOOD CATECHOLAMINES INCREASED [None]
  - BLOOD CHOLESTEROL INCREASED [None]
  - BLOOD PARATHYROID HORMONE INCREASED [None]
  - BLOOD THYROID STIMULATING HORMONE ABNORMAL [None]
  - EPINEPHRINE INCREASED [None]
  - HYPERTENSION [None]
  - LIVER FUNCTION TEST ABNORMAL [None]
  - NOREPINEPHRINE INCREASED [None]
  - WEIGHT INCREASED [None]
